FAERS Safety Report 15733376 (Version 3)
Quarter: 2019Q1

REPORT INFORMATION
  Report Type: Spontaneous
  Country: US (occurrence: US)
  Receive Date: 20181218
  Receipt Date: 20190111
  Transmission Date: 20190417
  Serious: Yes (Other)
  Sender: FDA-Public Use
  Company Number: US-BEH-2018097776

PATIENT
  Age: 41 Year
  Sex: Female

DRUGS (3)
  1. HIZENTRA [Suspect]
     Active Substance: HUMAN IMMUNOGLOBULIN G
     Dosage: 17 G, QW
     Route: 058
     Dates: start: 2014
  2. HIZENTRA [Suspect]
     Active Substance: HUMAN IMMUNOGLOBULIN G
     Indication: IMMUNODEFICIENCY COMMON VARIABLE
     Dosage: 17 G, QW
     Route: 058
     Dates: start: 20181125, end: 20181125
  3. HIZENTRA [Suspect]
     Active Substance: HUMAN IMMUNOGLOBULIN G
     Dosage: 17 G, TOT
     Route: 058
     Dates: start: 20181205, end: 20181205

REACTIONS (10)
  - Injection site erythema [Unknown]
  - Tympanic membrane perforation [Unknown]
  - Injection site swelling [Unknown]
  - Injection site irritation [Unknown]
  - Injection site erythema [Unknown]
  - Ear infection [Unknown]
  - Infusion site erythema [Unknown]
  - Injection site swelling [Unknown]
  - Injection site irritation [Unknown]
  - Infusion site warmth [Unknown]

NARRATIVE: CASE EVENT DATE: 2018
